FAERS Safety Report 9854814 (Version 1)
Quarter: 2014Q1

REPORT INFORMATION
  Report Type: Spontaneous
  Country: US (occurrence: US)
  Receive Date: 20140130
  Receipt Date: 20140130
  Transmission Date: 20141002
  Serious: Yes (Other)
  Sender: FDA-Public Use
  Company Number: 2014SP000150

PATIENT
  Age: 19 Year
  Sex: Female

DRUGS (4)
  1. VANCOMYCIN [Suspect]
     Indication: CLOSTRIDIUM DIFFICILE COLITIS
     Route: 048
  2. VANCOMYCIN [Suspect]
     Indication: SEPSIS
     Route: 048
  3. METRONIDAZOLE [Suspect]
     Indication: CLOSTRIDIUM DIFFICILE COLITIS
     Route: 042
  4. METRONIDAZOLE [Suspect]
     Indication: SEPSIS
     Route: 042

REACTIONS (2)
  - Drug ineffective [Unknown]
  - Pseudomembranous colitis [Recovered/Resolved]
